FAERS Safety Report 12089825 (Version 1)
Quarter: 2016Q1

REPORT INFORMATION
  Report Type: Spontaneous
  Country: US (occurrence: US)
  Receive Date: 20160218
  Receipt Date: 20160218
  Transmission Date: 20160526
  Serious: No
  Sender: FDA-Public Use
  Company Number: US-MISSION PHARMACAL COMPANY-1048069

PATIENT
  Age: 53 Year
  Sex: Female

DRUGS (1)
  1. THIOLA [Suspect]
     Active Substance: TIOPRONIN
     Indication: CYSTINURIA
     Route: 065
     Dates: start: 20141211

REACTIONS (6)
  - Myalgia [Unknown]
  - Systemic lupus erythematosus [Unknown]
  - Stress [Unknown]
  - Fibromyalgia [Unknown]
  - Nausea [Unknown]
  - Fatigue [Unknown]
